FAERS Safety Report 6901241-1 (Version None)
Quarter: 2010Q3

REPORT INFORMATION
  Report Type: 
  Country: None (occurrence: None)
  Receive Date: 20100803
  Receipt Date: 20100710
  Transmission Date: 20110219
  Serious: No
  Sender: FDA-Public Use
  Company Number: US-BAYER-201017905BCC

PATIENT
  Age: 42 Year
  Sex: Female
  Weight: 84 kg

DRUGS (5)
  1. ALEVE (CAPLET) [Suspect]
     Indication: TOOTHACHE
     Dosage: UNIT DOSE: 220 MG
     Route: 048
     Dates: start: 20100609
  2. LORTAB [Concomitant]
     Route: 065
     Dates: start: 20100709
  3. AMOXICILLIN [Concomitant]
     Route: 065
     Dates: start: 20100609
  4. PENICILLIN [Concomitant]
     Route: 065
     Dates: start: 20100609
  5. IBUPROFEN [Concomitant]
     Route: 065
     Dates: start: 20100609

REACTIONS (2)
  - LIP SWELLING [None]
  - SWELLING FACE [None]
